FAERS Safety Report 5426615-X (Version None)
Quarter: 2007Q3

REPORT INFORMATION
  Report Type: 
  Country: None (occurrence: None)
  Receive Date: 20070731
  Receipt Date: 20070618
  Transmission Date: 20080115
  Serious: No
  Sender: FDA-Public Use
  Company Number: US200706005526

PATIENT
  Sex: Male
  Weight: 113.4 kg

DRUGS (2)
  1. BYETTA [Suspect]
     Indication: DIABETES MELLITUS
     Dosage: SUBCUTANEOUS
     Route: 058
     Dates: start: 20060101, end: 20070101
  2. EXENATIDE [Concomitant]

REACTIONS (3)
  - ABDOMINAL DISTENSION [None]
  - GASTRIC HYPOMOTILITY [None]
  - WEIGHT DECREASED [None]
